FAERS Safety Report 7791451-6 (Version None)
Quarter: 2011Q4

REPORT INFORMATION
  Report Type: 
  Country: None (occurrence: None)
  Receive Date: 20111003
  Receipt Date: 20110922
  Transmission Date: 20120403
  Serious: Yes (Hospitalization, Other)
  Sender: FDA-Public Use
  Company Number: US-SHIRE-ALL1-2011-03572

PATIENT
  Sex: Female
  Weight: 49.887 kg

DRUGS (15)
  1. TUMS                               /00193601/ [Concomitant]
     Indication: GASTROOESOPHAGEAL REFLUX DISEASE
     Dosage: UNK UNK, AS REQ'D
     Route: 048
  2. LUNESTA [Concomitant]
     Indication: INSOMNIA
     Dosage: 2 MG, AS REQ'D
     Route: 048
  3. VYVANSE [Suspect]
     Indication: ATTENTION DEFICIT/HYPERACTIVITY DISORDER
     Dosage: 70 MG, OTHER (EVERY OTHER DAY)
     Route: 048
     Dates: start: 20070101, end: 20070101
  4. SYNTHROID [Concomitant]
     Indication: SUPPLEMENTATION THERAPY
     Dosage: 75 MCG, 1X/DAY:QD
     Route: 048
  5. PROPRANOLOL [Concomitant]
     Indication: POST-TRAUMATIC STRESS DISORDER
     Dosage: UNK UNK, UNKNOWN
     Route: 048
  6. SEROQUEL [Concomitant]
     Indication: SLEEP TERROR
     Dosage: 300 MG, 1X/DAY:QD
     Route: 048
  7. KLONOPIN [Concomitant]
     Indication: PANIC ATTACK
     Dosage: 1 MG, 4X/DAY:QID
     Route: 048
     Dates: start: 19950101
  8. KLONOPIN [Concomitant]
     Indication: ANXIETY
     Dosage: 1 MG, OTHER ( 5  TIMES A DAY)
     Route: 048
  9. KLONOPIN [Concomitant]
     Indication: BIPOLAR DISORDER
  10. SLEEP MEDICATION (UNSPECIFIED) [Concomitant]
     Indication: INSOMNIA
     Dosage: UNK UNK, UNKNOWN
     Route: 048
  11. EFFEXOR [Concomitant]
     Indication: DEPRESSION
     Dosage: 375 MG, 1X/DAY:QD
     Route: 048
  12. VYVANSE [Suspect]
     Dosage: 70 MG, 1X/DAY:QD
     Route: 048
     Dates: start: 20070101
  13. KLONOPIN [Concomitant]
     Indication: DEPRESSION
  14. QUINAPRIL HCL [Concomitant]
     Indication: HYPERTENSION
     Dosage: 40 MG, 1X/DAY:QD
     Route: 048
  15. KEPPRA [Concomitant]
     Indication: CONVULSION
     Dosage: UNK UNK, 1X/DAY:QD
     Route: 048
     Dates: start: 19920101

REACTIONS (27)
  - BREAST CANCER [None]
  - INTERVERTEBRAL DISC PROTRUSION [None]
  - RICKETS [None]
  - GASTROINTESTINAL NEOPLASM [None]
  - THERAPEUTIC RESPONSE UNEXPECTED [None]
  - CONDITION AGGRAVATED [None]
  - MALNUTRITION [None]
  - SOMNOLENCE [None]
  - COLON CANCER [None]
  - INTERVERTEBRAL DISC DEGENERATION [None]
  - RESTLESS LEGS SYNDROME [None]
  - PAIN [None]
  - DIARRHOEA [None]
  - VOMITING [None]
  - PELVIC MASS [None]
  - SKIN CANCER [None]
  - BARRETT'S OESOPHAGUS [None]
  - OESOPHAGEAL CARCINOMA [None]
  - ARTHRITIS [None]
  - OSTEOPOROSIS [None]
  - POLYP [None]
  - ABNORMAL LOSS OF WEIGHT [None]
  - CONSTIPATION [None]
  - DRY MOUTH [None]
  - HYPOMANIA [None]
  - FATIGUE [None]
  - FOREIGN BODY [None]
